FAERS Safety Report 12458118 (Version 1)
Quarter: 2016Q2

REPORT INFORMATION
  Report Type: Report from Study
  Country: FR (occurrence: FR)
  Receive Date: 20160613
  Receipt Date: 20160613
  Transmission Date: 20160815
  Serious: Yes (Hospitalization)
  Sender: FDA-Public Use
  Company Number: FR-ROCHE-1771428

PATIENT
  Sex: Female

DRUGS (9)
  1. CORTANCYL [Concomitant]
     Active Substance: PREDNISONE
     Route: 065
  2. RITUXIMAB [Suspect]
     Active Substance: RITUXIMAB
     Indication: RHEUMATOID ARTHRITIS
     Dosage: D1
     Route: 042
     Dates: start: 20080220
  3. METHOTREXATE [Concomitant]
     Active Substance: METHOTREXATE
     Route: 065
  4. RITUXIMAB [Suspect]
     Active Substance: RITUXIMAB
     Dosage: D15?INFUSION OF RITUXIMAB 1G (D1) ON 14/JUN/2011; INFUSION OF RITUXIMAB 1G (D15) ON 28/JUN/2011
     Route: 042
     Dates: start: 20090512
  5. RITUXIMAB [Suspect]
     Active Substance: RITUXIMAB
     Dosage: D15
     Route: 042
     Dates: start: 20080305
  6. RITUXIMAB [Suspect]
     Active Substance: RITUXIMAB
     Dosage: D1
     Route: 042
     Dates: start: 20090428
  7. RITUXIMAB [Suspect]
     Active Substance: RITUXIMAB
     Dosage: MOST RECENT DOSE: INFUSION OF RITUXIMAB 1G (D1) ON 10/SEP/2013; INFUSION OF RITUXIMAB 1G (D15) ON 25
     Route: 042
  8. METHOTREXATE [Concomitant]
     Active Substance: METHOTREXATE
     Dosage: 5 TABLETS PER WEEK
     Route: 065
  9. PREVISCAN (FRANCE) [Concomitant]
     Active Substance: FLUINDIONE

REACTIONS (9)
  - Pubis fracture [Recovering/Resolving]
  - Osteitis [Not Recovered/Not Resolved]
  - Ilium fracture [Recovering/Resolving]
  - Lower limb fracture [Recovered/Resolved]
  - Cellulitis [Recovered/Resolved]
  - Abscess limb [Recovered/Resolved]
  - Foot deformity [Not Recovered/Not Resolved]
  - Fractured ischium [Recovering/Resolving]
  - Osteoarthritis [Recovered/Resolved]

NARRATIVE: CASE EVENT DATE: 20090907
